FAERS Safety Report 8434082 (Version 7)
Quarter: 2013Q1

REPORT INFORMATION
  Report Type: Spontaneous
  Country: US (occurrence: US)
  Receive Date: 20120229
  Receipt Date: 20130325
  Transmission Date: 20140127
  Serious: Yes (Hospitalization, Other)
  Sender: FDA-Public Use
  Company Number: US-ASTRAZENECA-2012SE12307

PATIENT
  Age: 46 Year
  Sex: Female

DRUGS (2)
  1. NEXIUM [Suspect]
     Route: 048
  2. ZEGRID [Concomitant]

REACTIONS (14)
  - Multiple sclerosis [Unknown]
  - Ulcer [Unknown]
  - Monoparesis [Unknown]
  - Hypoaesthesia [Unknown]
  - Migraine [Unknown]
  - Influenza [Unknown]
  - Hernia [Unknown]
  - Gastrooesophageal reflux disease [Unknown]
  - Cardiac disorder [Unknown]
  - Cardiac murmur [Unknown]
  - Sleep apnoea syndrome [Unknown]
  - Thermal burn [Unknown]
  - Adverse event [Unknown]
  - Malaise [Unknown]
